FAERS Safety Report 24817084 (Version 2)
Quarter: 2025Q1

REPORT INFORMATION
  Report Type: Spontaneous
  Country: JP (occurrence: JP)
  Receive Date: 20250108
  Receipt Date: 20250117
  Transmission Date: 20250408
  Serious: No
  Sender: AMGEN
  Company Number: JP-Vifor (International) Inc.-VIT-2024-08007

PATIENT

DRUGS (3)
  1. TAVNEOS [Suspect]
     Active Substance: AVACOPAN
     Indication: Microscopic polyangiitis
     Route: 048
  2. RITUXIMAB [Concomitant]
     Active Substance: RITUXIMAB
  3. BOS TAURUS ADRENAL CORTEX CORTICOSTEROIDS [Concomitant]
     Active Substance: BOS TAURUS ADRENAL CORTEX CORTICOSTEROIDS
     Route: 065

REACTIONS (1)
  - Liver disorder [Unknown]
